FAERS Safety Report 5363490-6 (Version None)
Quarter: 2007Q2

REPORT INFORMATION
  Report Type: 
  Country: None (occurrence: None)
  Receive Date: 20070618
  Receipt Date: 20070611
  Transmission Date: 20071010
  Serious: Yes (Hospitalization)
  Sender: FDA-Public Use
  Company Number: 2007-01805

PATIENT
  Age: 66 Year
  Sex: Male

DRUGS (39)
  1. VELCADE [Suspect]
     Indication: MULTIPLE MYELOMA
     Dosage: (SEE IMAGE); INTRAVENOUS
     Route: 042
     Dates: start: 20070523, end: 20070526
  2. VELCADE [Suspect]
     Indication: MULTIPLE MYELOMA
     Dosage: (SEE IMAGE); INTRAVENOUS
     Route: 042
     Dates: start: 20060503
  3. VELCADE [Suspect]
     Indication: MULTIPLE MYELOMA
     Dosage: (SEE IMAGE); INTRAVENOUS
     Route: 042
     Dates: start: 20060616
  4. VELCADE [Suspect]
     Indication: MULTIPLE MYELOMA
     Dosage: (SEE IMAGE); INTRAVENOUS
     Route: 042
     Dates: start: 20070223
  5. THALIDOMIDE [Suspect]
     Indication: MULTIPLE MYELOMA
     Dosage: SEE IMAGE; ORAL
     Route: 048
     Dates: start: 20070326, end: 20070503
  6. THALIDOMIDE [Suspect]
     Indication: MULTIPLE MYELOMA
     Dosage: SEE IMAGE; ORAL
     Route: 048
     Dates: start: 20070516, end: 20070519
  7. THALIDOMIDE [Suspect]
     Indication: MULTIPLE MYELOMA
     Dosage: SEE IMAGE; ORAL
     Route: 048
     Dates: start: 20070523, end: 20070526
  8. THALIDOMIDE [Suspect]
     Indication: MULTIPLE MYELOMA
     Dosage: SEE IMAGE; ORAL
     Route: 048
     Dates: start: 20060503
  9. THALIDOMIDE [Suspect]
     Indication: MULTIPLE MYELOMA
     Dosage: SEE IMAGE; ORAL
     Route: 048
     Dates: start: 20060616
  10. THALIDOMIDE [Suspect]
     Indication: MULTIPLE MYELOMA
     Dosage: SEE IMAGE; ORAL
     Route: 048
     Dates: start: 20070223
  11. DEXAMETHASONE [Suspect]
     Indication: MULTIPLE MYELOMA
     Dosage: SEE IMAGE; ORAL
     Route: 048
     Dates: start: 20070523, end: 20070526
  12. DEXAMETHASONE [Suspect]
     Indication: MULTIPLE MYELOMA
     Dosage: SEE IMAGE; ORAL
     Route: 048
     Dates: start: 20060503
  13. DEXAMETHASONE [Suspect]
     Indication: MULTIPLE MYELOMA
     Dosage: SEE IMAGE; ORAL
     Route: 048
     Dates: start: 20060616
  14. DEXAMETHASONE [Suspect]
     Indication: MULTIPLE MYELOMA
     Dosage: SEE IMAGE; ORAL
     Route: 048
     Dates: start: 20070223
  15. CISPLATIN [Suspect]
     Indication: MULTIPLE MYELOMA
     Dosage: SEE IMAGE;
     Dates: start: 20060503
  16. CISPLATIN [Suspect]
     Indication: MULTIPLE MYELOMA
     Dosage: SEE IMAGE;
     Dates: start: 20060616
  17. CISPLATIN [Suspect]
     Indication: MULTIPLE MYELOMA
     Dosage: SEE IMAGE;
     Dates: start: 20070223
  18. DOXORUBICIN HCL [Suspect]
     Dates: start: 20060503
  19. DOXORUBICIN HCL [Suspect]
     Dates: start: 20060616
  20. DOXORUBICIN HCL [Suspect]
     Dates: start: 20070223
  21. CYCLOPHOSPHAMIDE [Suspect]
     Indication: MULTIPLE MYELOMA
     Dates: start: 20060503
  22. CYCLOPHOSPHAMIDE [Suspect]
     Indication: MULTIPLE MYELOMA
     Dates: start: 20060616
  23. CYCLOPHOSPHAMIDE [Suspect]
     Indication: MULTIPLE MYELOMA
     Dates: start: 20070223
  24. ETOPOSIDE [Suspect]
     Indication: MULTIPLE MYELOMA
     Dosage: SEE IMAGE;
     Dates: start: 20060503
  25. ETOPOSIDE [Suspect]
     Indication: MULTIPLE MYELOMA
     Dosage: SEE IMAGE;
     Dates: start: 20060616
  26. ETOPOSIDE [Suspect]
     Indication: MULTIPLE MYELOMA
     Dosage: SEE IMAGE;
     Dates: start: 20070223
  27. LEVAQUIN [Concomitant]
  28. DIFLUCAN [Concomitant]
  29. ACYCLOVIR [Concomitant]
  30. LEVOTHYROXINE SODIUM [Concomitant]
  31. COMBIVENT [Concomitant]
  32. EZETIMIBE [Concomitant]
  33. TOPROL-XL [Concomitant]
  34. MAGNESIUM OXIDE (MAGNESIUM OXIDE) [Concomitant]
  35. PROCRIT [Concomitant]
  36. AVANDAMET [Concomitant]
  37. MULTIVITAMINS (ERGOCALCIFEROL, PANTHENOL, NICOTINAMIDE, RIBOFLAVIN, TH [Concomitant]
  38. LOVENOX [Concomitant]
  39. NEUPOGEN [Concomitant]

REACTIONS (9)
  - ANAEMIA [None]
  - CHEST X-RAY ABNORMAL [None]
  - COLITIS [None]
  - DIVERTICULAR PERFORATION [None]
  - DIZZINESS POSTURAL [None]
  - DRUG DOSE OMISSION [None]
  - INCREASED TENDENCY TO BRUISE [None]
  - ORTHOSTATIC HYPOTENSION [None]
  - WHITE BLOOD CELL COUNT DECREASED [None]
